FAERS Safety Report 9345375 (Version 2)
Quarter: 2013Q3

REPORT INFORMATION
  Report Type: Spontaneous
  Country: US (occurrence: US)
  Receive Date: 20130613
  Receipt Date: 20130916
  Transmission Date: 20140515
  Serious: Yes (Hospitalization)
  Sender: FDA-Public Use
  Company Number: US-B.I. PHARMACEUTICALS,INC./RIDGEFIELD-2013-BI-16470BP

PATIENT
  Age: 73 Year
  Sex: Female

DRUGS (3)
  1. MICARDIS HCT [Suspect]
     Indication: HYPERTENSION
     Dosage: STRENGTH: 80 MG / 25 MG; DAILY DOSE: 80 MG / 25 MG
     Route: 048
     Dates: end: 201303
  2. MICARDIS HCT [Suspect]
     Dosage: STRENGTH: 80 MG / 12.5 MG; DAILY DOSE: 80 MG / 12. 5 MG
     Route: 048
     Dates: start: 201303, end: 201303
  3. MICARDIS HCT [Suspect]
     Dosage: STRENGTH: 80 MG / 25 MG; DAILY DOSE: 80 MG / 25 MG
     Route: 048

REACTIONS (2)
  - Chest pain [Recovered/Resolved]
  - Hypertension [Recovered/Resolved]
